FAERS Safety Report 25913068 (Version 1)
Quarter: 2025Q4

REPORT INFORMATION
  Report Type: Spontaneous
  Country: EU (occurrence: EU)
  Receive Date: 20251013
  Receipt Date: 20251013
  Transmission Date: 20260117
  Serious: Yes (Hospitalization, Other)
  Sender: SANOFI AVENTIS
  Company Number: None

PATIENT
  Age: 74 Year
  Sex: Female
  Weight: 88 kg

DRUGS (11)
  1. LOVENOX [Interacting]
     Active Substance: ENOXAPARIN SODIUM
     Indication: Ischaemic stroke
     Dosage: 4000 IU, QD
     Route: 042
     Dates: start: 20250320, end: 20250321
  2. LOVENOX [Interacting]
     Active Substance: ENOXAPARIN SODIUM
     Dosage: 8000 IU, Q12H
     Route: 042
     Dates: start: 20250322, end: 20250324
  3. LOVENOX [Interacting]
     Active Substance: ENOXAPARIN SODIUM
     Dosage: 4000 IU, QD
     Route: 042
     Dates: start: 20250327, end: 20250414
  4. ALTEPLASE [Interacting]
     Active Substance: ALTEPLASE
     Indication: Ischaemic stroke
     Dosage: 7 MG, TOTAL
     Route: 042
     Dates: start: 20250319, end: 20250319
  5. ALTEPLASE [Interacting]
     Active Substance: ALTEPLASE
     Dosage: 65 MG, TOTAL
     Route: 042
     Dates: start: 20250319, end: 20250319
  6. KARDEGIC [Concomitant]
     Active Substance: ASPIRIN DL-LYSINE
     Indication: Ischaemic stroke
     Dosage: 1 DF, QD
     Route: 048
     Dates: start: 20250321, end: 20250321
  7. CANDESARTAN CILEXETIL [Concomitant]
     Active Substance: CANDESARTAN CILEXETIL
     Indication: Hypertension
     Dosage: 1 DF, QD
     Route: 048
  8. Fludex [Concomitant]
     Indication: Hypertension
     Dosage: 1 DF, QD
     Route: 048
  9. LERCANIDIPINE [Concomitant]
     Active Substance: LERCANIDIPINE
     Indication: Hypertension
     Dosage: 2 DF, QD
     Route: 048
  10. NEBIVOLOL HYDROCHLORIDE [Concomitant]
     Active Substance: NEBIVOLOL HYDROCHLORIDE
     Indication: Hypertension
     Dosage: 0.75 DF, QD
     Route: 048
  11. PRAVASTATIN SODIUM [Concomitant]
     Active Substance: PRAVASTATIN SODIUM
     Indication: Hypercholesterolaemia
     Dosage: 1 DF, QD
     Route: 048

REACTIONS (2)
  - Drug interaction [Recovered/Resolved]
  - Abdominal wall haematoma [Recovered/Resolved]

NARRATIVE: CASE EVENT DATE: 20250320
